FAERS Safety Report 16853464 (Version 1)
Quarter: 2019Q3

REPORT INFORMATION
  Report Type: Report from Study
  Country: None (occurrence: RO)
  Receive Date: 20190925
  Receipt Date: 20190925
  Transmission Date: 20191005
  Serious: Yes (Hospitalization)
  Sender: FDA-Public Use
  Company Number: RO-ABBVIE-19K-135-2935221-00

PATIENT
  Age: 77 Year
  Sex: Female

DRUGS (4)
  1. DASABUVIR [Suspect]
     Active Substance: DASABUVIR
     Indication: HEPATIC CIRRHOSIS
  2. VIEKIRAX [Suspect]
     Active Substance: OMBITASVIR\PARITAPREVIR\RITONAVIR
     Indication: HEPATIC CIRRHOSIS
     Route: 048
     Dates: start: 20190701, end: 20190728
  3. VIEKIRAX [Suspect]
     Active Substance: OMBITASVIR\PARITAPREVIR\RITONAVIR
     Indication: HEPATIC CIRRHOSIS
  4. DASABUVIR [Suspect]
     Active Substance: DASABUVIR
     Indication: HEPATIC CIRRHOSIS
     Route: 048
     Dates: start: 20190701, end: 20190728

REACTIONS (18)
  - Decreased appetite [Recovering/Resolving]
  - Abdominal pain upper [Recovering/Resolving]
  - Lung hyperinflation [Recovering/Resolving]
  - Lung disorder [Recovering/Resolving]
  - Mucosal dryness [Recovering/Resolving]
  - Hyperkalaemia [Recovered/Resolved]
  - Dry skin [Recovering/Resolving]
  - Poor quality sleep [Recovering/Resolving]
  - Fatigue [Recovering/Resolving]
  - Leukocyturia [Recovering/Resolving]
  - Agitation [Recovering/Resolving]
  - Chest X-ray abnormal [Recovering/Resolving]
  - Hyponatraemia [Recovered/Resolved]
  - Weight decreased [Recovering/Resolving]
  - Anxiety [Recovering/Resolving]
  - Asthenia [Recovering/Resolving]
  - Blood urea increased [Recovering/Resolving]
  - Diarrhoea [Recovered/Resolved]

NARRATIVE: CASE EVENT DATE: 2019
